FAERS Safety Report 18467558 (Version 1)
Quarter: 2020Q4

REPORT INFORMATION
  Report Type: Spontaneous
  Country: US (occurrence: US)
  Receive Date: 20201105
  Receipt Date: 20201105
  Transmission Date: 20210114
  Serious: Yes (Other)
  Sender: FDA-Public Use
  Company Number: US-EYEPOINT PHARMACEUTICALS, INC.-US-EYP-20-00362

PATIENT
  Sex: Female

DRUGS (1)
  1. YUTIQ [Suspect]
     Active Substance: FLUOCINOLONE ACETONIDE
     Indication: DIABETIC RETINAL OEDEMA
     Route: 031
     Dates: start: 20200723, end: 20200723

REACTIONS (5)
  - Needle issue [Unknown]
  - Complication of device insertion [Unknown]
  - Product use complaint [Unknown]
  - Off label use [Unknown]
  - Product dose omission issue [Unknown]
